FAERS Safety Report 7948389-0 (Version None)
Quarter: 2011Q4

REPORT INFORMATION
  Report Type: 
  Country: None (occurrence: None)
  Receive Date: 20111123
  Receipt Date: 20111114
  Transmission Date: 20120403
  Serious: Yes (Disabling)
  Sender: FDA-Public Use
  Company Number: DSJ-2011-24606

PATIENT
  Age: 63 Year
  Sex: Male

DRUGS (1)
  1. OLMESARTAN MEDOXOMIL [Suspect]
     Indication: HYPERTENSION
     Dosage: 10 MG,PER ORAL
     Route: 048
     Dates: start: 20110722

REACTIONS (4)
  - FALL [None]
  - CONTUSION [None]
  - DIZZINESS [None]
  - LOSS OF CONSCIOUSNESS [None]
